FAERS Safety Report 8620411-8 (Version None)
Quarter: 2012Q3

REPORT INFORMATION
  Report Type: 
  Country: None (occurrence: None)
  Receive Date: 20120824
  Receipt Date: 20120816
  Transmission Date: 20120928
  Serious: Yes (Life-Threatening)
  Sender: FDA-Public Use
  Company Number: FR-GLAXOSMITHKLINE-B0823117A

PATIENT
  Sex: Female

DRUGS (18)
  1. GAVISCON [Concomitant]
     Route: 065
  2. LORAZEPAM [Concomitant]
     Dosage: 10MG PER DAY
  3. ZOFRAN [Suspect]
     Indication: PREMEDICATION
     Dosage: 8MG SINGLE DOSE
     Route: 042
     Dates: start: 20120703, end: 20120703
  4. POLARAMINE [Suspect]
     Indication: PREMEDICATION
     Dosage: 5MG SINGLE DOSE
     Route: 042
     Dates: start: 20120703, end: 20120703
  5. MABTHERA [Suspect]
     Indication: NON-HODGKIN'S LYMPHOMA
     Dosage: 300MG SINGLE DOSE
     Route: 042
     Dates: start: 20120703, end: 20120703
  6. LANSOYL [Concomitant]
  7. SOLU-MEDROL [Suspect]
     Indication: PREMEDICATION
     Dosage: 80MG SINGLE DOSE
     Route: 042
     Dates: start: 20120703, end: 20120703
  8. FLUTICASONE PROPIONATE/SALMETEROL [Concomitant]
  9. ACETAMINOPHEN [Concomitant]
     Dosage: 500MG SIX TIMES PER DAY
  10. FRAGMIN [Concomitant]
     Dosage: 5000IU UNKNOWN
  11. ACETAMINOPHEN [Suspect]
     Indication: PREMEDICATION
     Dosage: 1G SINGLE DOSE
     Route: 042
     Dates: start: 20120703, end: 20120703
  12. ALLOPURINOL [Concomitant]
     Dosage: 300MG PER DAY
  13. RASBURICASE [Suspect]
     Indication: PREMEDICATION
     Dosage: 10.05MG SINGLE DOSE
     Route: 042
     Dates: start: 20120703, end: 20120703
  14. VENTOLIN [Concomitant]
  15. CETIRIZINE [Concomitant]
     Dosage: 10MG THREE TIMES PER DAY
  16. ESOMEPRAZOLE SODIUM [Concomitant]
     Dosage: 40MG PER DAY
  17. TRANSIPEG [Concomitant]
  18. DOMPERIDONE [Concomitant]
     Dosage: 10MG THREE TIMES PER DAY

REACTIONS (8)
  - HYPERSENSITIVITY [None]
  - RESPIRATORY DISTRESS [None]
  - ABDOMINAL PAIN [None]
  - CYANOSIS [None]
  - RASH MACULAR [None]
  - DYSPNOEA [None]
  - HYPERHIDROSIS [None]
  - OXYGEN SATURATION DECREASED [None]
